FAERS Safety Report 4756368-X (Version None)
Quarter: 2005Q3

REPORT INFORMATION
  Report Type: 
  Country: None (occurrence: None)
  Receive Date: 20050830
  Receipt Date: 20050609
  Transmission Date: 20060218
  Serious: No
  Sender: FDA-Public Use
  Company Number: US-GLAXOSMITHKLINE-A0562022A

PATIENT
  Age: 60 Year
  Sex: Male

DRUGS (6)
  1. WELLBUTRIN XL [Suspect]
     Indication: DEPRESSION
     Dosage: 150MG PER DAY
     Route: 048
  2. METFORMIN [Concomitant]
  3. LISINOPRIL [Concomitant]
  4. ACT-3 [Concomitant]
  5. ROSIGLITAZONE [Concomitant]
  6. INSULIN [Concomitant]

REACTIONS (1)
  - ERECTILE DYSFUNCTION [None]
